FAERS Safety Report 24684322 (Version 1)
Quarter: 2024Q4

REPORT INFORMATION
  Report Type: Spontaneous
  Country: SE (occurrence: SE)
  Receive Date: 20241202
  Receipt Date: 20241202
  Transmission Date: 20250114
  Serious: Yes (Other)
  Sender: AUROBINDO
  Company Number: SE-ORIFARM-032395

PATIENT
  Age: 35 Year
  Sex: Female

DRUGS (2)
  1. SERTRALINE [Suspect]
     Active Substance: SERTRALINE HYDROCHLORIDE
     Indication: Depression
     Dosage: THE DOSAGE OF SERTRALINE AT THE TIME OF DIAGNOSIS RANGED FROM 100 TO 200 MG
     Route: 065
  2. SERTRALINE [Suspect]
     Active Substance: SERTRALINE HYDROCHLORIDE
     Indication: Anxiety disorder

REACTIONS (1)
  - Multiple acyl-coenzyme A dehydrogenase deficiency [Unknown]
